FAERS Safety Report 12932446 (Version 1)
Quarter: 2016Q4

REPORT INFORMATION
  Report Type: Spontaneous
  Country: US (occurrence: US)
  Receive Date: 20161111
  Receipt Date: 20161111
  Transmission Date: 20170207
  Serious: No
  Sender: FDA-Public Use
  Company Number: US-BAYER-2016-216450

PATIENT
  Sex: Male

DRUGS (1)
  1. MIRALAX [Suspect]
     Active Substance: POLYETHYLENE GLYCOL 3350
     Indication: COLONOSCOPY
     Dosage: 238 GRAMS DILUTED IN GALLON OF GATORADE
     Dates: start: 20161110, end: 20161110

REACTIONS (1)
  - Off label use [None]

NARRATIVE: CASE EVENT DATE: 20161110
